FAERS Safety Report 9546583 (Version 2)
Quarter: 2013Q4

REPORT INFORMATION
  Report Type: Spontaneous
  Country: CO (occurrence: CO)
  Receive Date: 20130924
  Receipt Date: 20131002
  Transmission Date: 20140711
  Serious: Yes (Hospitalization, Other)
  Sender: FDA-Public Use
  Company Number: CO-ROCHE-1279531

PATIENT
  Age: 57 Year
  Sex: Male
  Weight: 60 kg

DRUGS (4)
  1. LUCENTIS [Suspect]
     Indication: MACULAR DEGENERATION
     Route: 050
     Dates: start: 20130331
  2. LUCENTIS [Suspect]
     Route: 050
     Dates: start: 20130604
  3. METFORMIN [Concomitant]
  4. INSULIN [Concomitant]

REACTIONS (2)
  - Diabetic foot [Recovered/Resolved]
  - Local swelling [Recovered/Resolved]
